FAERS Safety Report 7868062-7 (Version None)
Quarter: 2011Q4

REPORT INFORMATION
  Report Type: 
  Country: None (occurrence: None)
  Receive Date: 20111028
  Receipt Date: 20111024
  Transmission Date: 20120403
  Serious: Yes (Other)
  Sender: FDA-Public Use
  Company Number: DE-ROCHE-1007249

PATIENT
  Sex: Female

DRUGS (2)
  1. BONIVA [Suspect]
     Indication: PROPHYLAXIS
  2. GOSERELIN [Suspect]
     Indication: PROPHYLAXIS
     Route: 058

REACTIONS (6)
  - HOT FLUSH [None]
  - CARDIOVASCULAR DISORDER [None]
  - MENSTRUATION IRREGULAR [None]
  - VAGINAL DISCHARGE [None]
  - VULVOVAGINAL DRYNESS [None]
  - HEADACHE [None]
